FAERS Safety Report 4746454-2 (Version None)
Quarter: 2005Q3

REPORT INFORMATION
  Report Type: 
  Country: None (occurrence: None)
  Receive Date: 20050816
  Receipt Date: 20050816
  Transmission Date: 20060218
  Serious: Yes (Other)
  Sender: FDA-Public Use
  Company Number: None

PATIENT
  Age: 45 Year
  Sex: Male
  Weight: 74.8435 kg

DRUGS (2)
  1. VANCOMYCIN [Suspect]
     Indication: ABSCESS
     Dosage: 1 GM IV Q 12 H
     Route: 042
     Dates: start: 20050716
  2. ZOSYN [Suspect]
     Indication: TESTICULAR DISORDER
     Dosage: 3.375GM IV Q 6 H
     Route: 042
     Dates: start: 20050716

REACTIONS (1)
  - RASH GENERALISED [None]
